FAERS Safety Report 25093618 (Version 1)
Quarter: 2025Q1

REPORT INFORMATION
  Report Type: Spontaneous
  Country: SE (occurrence: SE)
  Receive Date: 20250319
  Receipt Date: 20250319
  Transmission Date: 20250408
  Serious: Yes (Other)
  Sender: MERCK SHARP & DOHME LLC
  Company Number: None

PATIENT
  Age: 48 Year
  Sex: Female
  Weight: 77 kg

DRUGS (5)
  1. KEYTRUDA [Suspect]
     Active Substance: PEMBROLIZUMAB
     Indication: Triple negative breast cancer
     Route: 042
     Dates: start: 20231030, end: 20240205
  2. CYCLOPHOSPHAMIDE [Concomitant]
     Active Substance: CYCLOPHOSPHAMIDE
     Route: 042
     Dates: start: 20240112, end: 20240205
  3. PACLITAXEL [Concomitant]
     Active Substance: PACLITAXEL
     Route: 042
     Dates: start: 20231030, end: 20240103
  4. EPIRUBICIN HYDROCHLORIDE [Concomitant]
     Active Substance: EPIRUBICIN HYDROCHLORIDE
     Route: 042
     Dates: start: 20240112, end: 20240205
  5. CARBOPLATIN [Concomitant]
     Active Substance: CARBOPLATIN
     Route: 042
     Dates: start: 20231030, end: 20240103

REACTIONS (2)
  - Myocarditis [Not Recovered/Not Resolved]
  - Troponin T increased [Not Recovered/Not Resolved]

NARRATIVE: CASE EVENT DATE: 20240411
